FAERS Safety Report 8228091-0 (Version None)
Quarter: 2012Q1

REPORT INFORMATION
  Report Type: 
  Country: None (occurrence: None)
  Receive Date: 20120322
  Receipt Date: 20111228
  Transmission Date: 20120608
  Serious: No
  Sender: FDA-Public Use
  Company Number: US-BRISTOL-MYERS SQUIBB COMPANY-16320228

PATIENT
  Age: 80 Year
  Sex: Male

DRUGS (2)
  1. IRINOTECAN HCL [Suspect]
  2. ERBITUX [Suspect]
     Dates: start: 20110823

REACTIONS (6)
  - DIARRHOEA [None]
  - FATIGUE [None]
  - SKIN CHAPPED [None]
  - ALOPECIA [None]
  - DEHYDRATION [None]
  - WEIGHT DECREASED [None]
